FAERS Safety Report 24156285 (Version 1)
Quarter: 2024Q3

REPORT INFORMATION
  Report Type: Spontaneous
  Country: US (occurrence: None)
  Receive Date: 20240730
  Receipt Date: 20240730
  Transmission Date: 20241017
  Serious: Yes (Other)
  Sender: Public
  Company Number: None

PATIENT
  Age: 55 Year
  Sex: Female
  Weight: 74.7 kg

DRUGS (2)
  1. INGREZZA [Suspect]
     Active Substance: VALBENAZINE
     Indication: Trismus
     Dosage: FREQUENCY : AT BEDTIME;?
     Route: 048
     Dates: start: 20240703, end: 20240717
  2. INGREZZA [Concomitant]
     Active Substance: VALBENAZINE
     Dates: start: 20240703, end: 20240717

REACTIONS (2)
  - Suicidal ideation [None]
  - Therapy cessation [None]

NARRATIVE: CASE EVENT DATE: 20240717
